FAERS Safety Report 12203832 (Version 1)
Quarter: 2016Q1

REPORT INFORMATION
  Report Type: Spontaneous
  Country: US (occurrence: US)
  Receive Date: 20160323
  Receipt Date: 20160323
  Transmission Date: 20160526
  Serious: No
  Sender: FDA-Public Use
  Company Number: US-ACTAVIS-2016-01402

PATIENT
  Sex: Male

DRUGS (1)
  1. MATZIM LA [Suspect]
     Active Substance: DILTIAZEM HYDROCHLORIDE
     Indication: HYPERTENSION
     Dosage: 300 MG, ONCE DAILY
     Route: 048
     Dates: start: 2007

REACTIONS (2)
  - Product quality issue [None]
  - Drug effect decreased [Not Recovered/Not Resolved]
